FAERS Safety Report 18337458 (Version 2)
Quarter: 2024Q3

REPORT INFORMATION
  Report Type: Report from Study
  Country: CA (occurrence: CA)
  Receive Date: 20201002
  Receipt Date: 20240911
  Transmission Date: 20241017
  Serious: Yes (Other)
  Sender: ABBVIE
  Company Number: CA-ABBVIE-20K-028-3588662-00

PATIENT
  Age: 78 Year
  Sex: Female

DRUGS (9)
  1. SKYRIZI [Suspect]
     Active Substance: RISANKIZUMAB-RZAA
     Indication: Psoriasis
     Route: 058
     Dates: start: 20200911
  2. SKYRIZI [Suspect]
     Active Substance: RISANKIZUMAB-RZAA
     Route: 058
     Dates: start: 20200814, end: 20200910
  3. SKYRIZI [Suspect]
     Active Substance: RISANKIZUMAB-RZAA
     Dosage: 0.3 ML, FREQUENCY TEXT: ONCE
     Route: 058
  4. covid19 pfizer vaccine [Concomitant]
     Indication: COVID-19 prophylaxis
     Dosage: VACCINATION
     Route: 030
     Dates: start: 20211122, end: 20211122
  5. covid19 pfizer vaccine [Concomitant]
     Indication: COVID-19 prophylaxis
     Dosage: VACCINATION, FREQUENCY TEXT: ONCE, FREQUENCY TEXT: ONCE
     Route: 030
     Dates: start: 20220706, end: 20220706
  6. CLOBETASOL [Concomitant]
     Active Substance: CLOBETASOL
     Indication: Psoriasis
     Dosage: 1 APPLICATION,  SCALP LOTION, FREQUENCY TEXT: AS REQUIRED
     Route: 061
     Dates: start: 20220922
  7. CEFIXIME [Concomitant]
     Active Substance: CEFIXIME
     Indication: Localised infection
     Route: 048
     Dates: start: 202103, end: 202103
  8. INFLUENZA VIRUS VACCINE [Concomitant]
     Active Substance: INFLUENZA VIRUS VACCINE
     Indication: Antiviral prophylaxis
     Dosage: VACCINATION
     Route: 030
     Dates: start: 20211020, end: 20211020
  9. INFLUENZA VIRUS VACCINE [Concomitant]
     Active Substance: INFLUENZA VIRUS VACCINE
     Indication: Antiviral prophylaxis
     Dosage: VACCINATION, FREQUENCY TEXT: ONCE, FREQUENCY TEXT: ONCE
     Route: 030
     Dates: start: 20221019, end: 20221019

REACTIONS (1)
  - Peripheral artery occlusion [Not Recovered/Not Resolved]

NARRATIVE: CASE EVENT DATE: 20200924
